FAERS Safety Report 13912170 (Version 1)
Quarter: 2017Q3

REPORT INFORMATION
  Report Type: Spontaneous
  Country: US (occurrence: US)
  Receive Date: 20170828
  Receipt Date: 20170828
  Transmission Date: 20171127
  Serious: No
  Sender: FDA-Public Use
  Company Number: US-ROCHE-1141405

PATIENT
  Age: 5 Year
  Sex: Male
  Weight: 13.62 kg

DRUGS (6)
  1. FLOVENT [Concomitant]
     Active Substance: FLUTICASONE PROPIONATE
     Indication: CHRONIC RESPIRATORY FAILURE
     Route: 065
  2. LEVOXYL [Concomitant]
     Active Substance: LEVOTHYROXINE SODIUM
     Indication: HYPERTHYROIDISM
     Route: 065
  3. NUTROPIN [Suspect]
     Active Substance: SOMATROPIN
     Route: 058
     Dates: start: 20120902, end: 20120906
  4. NUTROPIN [Suspect]
     Active Substance: SOMATROPIN
     Indication: BLOOD GROWTH HORMONE DECREASED
     Route: 058
     Dates: start: 2005, end: 2008
  5. CHLORAL HYDRATE [Concomitant]
     Active Substance: CHLORAL HYDRATE
     Indication: INSOMNIA
     Route: 065
  6. GENOTROPIN [Suspect]
     Active Substance: SOMATROPIN
     Indication: GROWTH HORMONE DEFICIENCY
     Route: 058
     Dates: start: 20120902, end: 20120906

REACTIONS (2)
  - Drug ineffective [Unknown]
  - Tachycardia [Recovered/Resolved]

NARRATIVE: CASE EVENT DATE: 200609
